FAERS Safety Report 6521283-8 (Version None)
Quarter: 2009Q4

REPORT INFORMATION
  Report Type: 
  Country: None (occurrence: None)
  Receive Date: 20091222
  Receipt Date: 20091121
  Transmission Date: 20100525
  Serious: Yes (Other)
  Sender: FDA-Public Use
  Company Number: JPI-P-008651

PATIENT
  Age: 50 Year
  Sex: Male

DRUGS (15)
  1. FLUVOXAMINE MALEATE [Suspect]
     Indication: DEPRESSION
     Dosage: (50 MG, 1 D), ORAL; (100 MG, 1 D), ORAL; (150 MG, 1 D) , ORAL; (50 MG, 1 D), ORAL
     Route: 048
     Dates: start: 20090807, end: 20090813
  2. FLUVOXAMINE MALEATE [Suspect]
     Indication: OBSESSIVE-COMPULSIVE DISORDER
     Dosage: (50 MG, 1 D), ORAL; (100 MG, 1 D), ORAL; (150 MG, 1 D) , ORAL; (50 MG, 1 D), ORAL
     Route: 048
     Dates: start: 20090807, end: 20090813
  3. FLUVOXAMINE MALEATE [Suspect]
     Indication: DEPRESSION
     Dosage: (50 MG, 1 D), ORAL; (100 MG, 1 D), ORAL; (150 MG, 1 D) , ORAL; (50 MG, 1 D), ORAL
     Route: 048
     Dates: start: 20090814, end: 20090827
  4. FLUVOXAMINE MALEATE [Suspect]
     Indication: OBSESSIVE-COMPULSIVE DISORDER
     Dosage: (50 MG, 1 D), ORAL; (100 MG, 1 D), ORAL; (150 MG, 1 D) , ORAL; (50 MG, 1 D), ORAL
     Route: 048
     Dates: start: 20090814, end: 20090827
  5. FLUVOXAMINE MALEATE [Suspect]
     Indication: DEPRESSION
     Dosage: (50 MG, 1 D), ORAL; (100 MG, 1 D), ORAL; (150 MG, 1 D) , ORAL; (50 MG, 1 D), ORAL
     Route: 048
     Dates: start: 20090828, end: 20090904
  6. FLUVOXAMINE MALEATE [Suspect]
     Indication: OBSESSIVE-COMPULSIVE DISORDER
     Dosage: (50 MG, 1 D), ORAL; (100 MG, 1 D), ORAL; (150 MG, 1 D) , ORAL; (50 MG, 1 D), ORAL
     Route: 048
     Dates: start: 20090828, end: 20090904
  7. FLUVOXAMINE MALEATE [Suspect]
     Indication: DEPRESSION
     Dosage: (50 MG, 1 D), ORAL; (100 MG, 1 D), ORAL; (150 MG, 1 D) , ORAL; (50 MG, 1 D), ORAL
     Route: 048
     Dates: start: 20090905
  8. FLUVOXAMINE MALEATE [Suspect]
     Indication: OBSESSIVE-COMPULSIVE DISORDER
     Dosage: (50 MG, 1 D), ORAL; (100 MG, 1 D), ORAL; (150 MG, 1 D) , ORAL; (50 MG, 1 D), ORAL
     Route: 048
     Dates: start: 20090905
  9. PAROXETINE HYDROCHLORIDE [Concomitant]
  10. AMOXAPINE [Concomitant]
  11. SULPIRIDE [Concomitant]
  12. FLUNITRAZEPAM [Concomitant]
  13. TRIAZOLAM [Concomitant]
  14. ALPRAZOLAM [Concomitant]
  15. SERTRALINE HYDROCHLORIDE [Concomitant]

REACTIONS (6)
  - ACTIVATION SYNDROME [None]
  - EATING DISORDER [None]
  - IMPULSE-CONTROL DISORDER [None]
  - INSOMNIA [None]
  - IRRITABILITY [None]
  - TREATMENT NONCOMPLIANCE [None]
